FAERS Safety Report 24186108 (Version 1)
Quarter: 2024Q3

REPORT INFORMATION
  Report Type: Spontaneous
  Country: US (occurrence: US)
  Receive Date: 20240808
  Receipt Date: 20240808
  Transmission Date: 20241017
  Serious: No
  Sender: SANDOZ
  Company Number: US-SANDOZ-SDZ2024US071193

PATIENT
  Age: 68 Year
  Sex: Female

DRUGS (3)
  1. LONSURF [Suspect]
     Active Substance: TIPIRACIL HYDROCHLORIDE\TRIFLURIDINE
     Indication: Colon cancer
     Dosage: 110 MG, QD ((55 MG 1 IN 12 HOUR ON DAYS 1-5 AND 15-19 OF EACH 28 DAYS CYCLE) (15MG)) TAS-102
     Route: 048
     Dates: start: 202402
  2. LONSURF [Suspect]
     Active Substance: TIPIRACIL HYDROCHLORIDE\TRIFLURIDINE
     Dosage: 110 MG, QD  (55 MG 1 IN 12 HOUR ON DAYS 1-5 AND 15-19 OF EACH 28 DAYS CYCLE) (20MG)
     Route: 048
  3. ZARXIO [Suspect]
     Active Substance: FILGRASTIM-SNDZ
     Indication: Product used for unknown indication
     Dosage: UNK (SYRINGE)
     Route: 065

REACTIONS (1)
  - Diarrhoea [Recovering/Resolving]
